FAERS Safety Report 4810576-8 (Version None)
Quarter: 2005Q4

REPORT INFORMATION
  Report Type: 
  Country: None (occurrence: None)
  Receive Date: 20051024
  Receipt Date: 20051010
  Transmission Date: 20060501
  Serious: Yes (Death)
  Sender: FDA-Public Use
  Company Number: FR-2005-020339

PATIENT
  Age: 50 Year
  Sex: Female

DRUGS (2)
  1. MAGNEVIST [Suspect]
     Indication: NUCLEAR MAGNETIC RESONANCE IMAGING
     Dosage: 3 ML, 1 DOSE, INTRAVENOUS
     Route: 042
     Dates: start: 20050928, end: 20050928
  2. ANTIHYPERTENSIVES [Concomitant]

REACTIONS (4)
  - CEREBRAL HAEMORRHAGE [None]
  - EPILEPSY [None]
  - INFUSION RELATED REACTION [None]
  - VOMITING [None]
